FAERS Safety Report 15122683 (Version 1)
Quarter: 2018Q3

REPORT INFORMATION
  Report Type: Spontaneous
  Country: GB (occurrence: GB)
  Receive Date: 20180709
  Receipt Date: 20180709
  Transmission Date: 20181010
  Serious: Yes (Hospitalization)
  Sender: FDA-Public Use
  Company Number: GB-TEVA-2018-GB-923361

PATIENT
  Age: 71 Year
  Sex: Female

DRUGS (2)
  1. CAPECITABINE. [Suspect]
     Active Substance: CAPECITABINE
     Route: 065
  2. CISPLATIN. [Suspect]
     Active Substance: CISPLATIN
     Route: 065

REACTIONS (1)
  - Haemorrhagic stroke [Recovered/Resolved with Sequelae]
